FAERS Safety Report 20327443 (Version 1)
Quarter: 2022Q1

REPORT INFORMATION
  Report Type: Spontaneous
  Country: US (occurrence: US)
  Receive Date: 20220112
  Receipt Date: 20220112
  Transmission Date: 20220423
  Serious: No
  Sender: FDA-Public Use
  Company Number: US-PALATIN TECHNOLOGIES, INC.-US-PALA-21-000117

PATIENT

DRUGS (1)
  1. VYLEESI [Suspect]
     Active Substance: BREMELANOTIDE ACETATE
     Indication: Product used for unknown indication

REACTIONS (2)
  - Product complaint [Unknown]
  - Drug ineffective [Unknown]
